FAERS Safety Report 10867333 (Version 4)
Quarter: 2015Q2

REPORT INFORMATION
  Report Type: Spontaneous
  Country: JP (occurrence: JP)
  Receive Date: 20150225
  Receipt Date: 20150422
  Transmission Date: 20150821
  Serious: Yes (Life-Threatening, Disabling, Other)
  Sender: FDA-Public Use
  Company Number: JP-009507513-1502JPN009679

PATIENT
  Age: 28 Year
  Sex: Female

DRUGS (26)
  1. METGLUCO [Concomitant]
     Active Substance: METFORMIN HYDROCHLORIDE
     Dosage: 750 MG, TID
     Route: 048
     Dates: start: 20141211, end: 20150108
  2. MAGMITT [Concomitant]
     Active Substance: MAGNESIUM OXIDE
     Dosage: 990 MG, TID
     Route: 048
  3. RELPAX [Concomitant]
     Active Substance: ELETRIPTAN HYDROBROMIDE
     Indication: MIGRAINE
     Dosage: 20 MG, AT THE TIME OF MIGRAINE
     Route: 048
  4. DEPAKENE [Concomitant]
     Active Substance: VALPROIC ACID
     Dosage: 400 MG, QD
     Route: 048
  5. TETRAMIDE [Concomitant]
     Active Substance: MIANSERIN
     Dosage: 30 MG, QD
     Route: 048
     Dates: start: 20141211, end: 20150107
  6. WINTERMIN [Concomitant]
     Active Substance: PROMAZINE
     Dosage: 0.3 G, QD, FORMULATION: FGR
     Route: 048
     Dates: start: 20141211, end: 20141224
  7. HYDANTOL [Concomitant]
     Active Substance: PHENYTOIN SODIUM
     Dosage: 1 G, TID, FORMULATION: POW
     Route: 048
  8. CYMBALTA [Concomitant]
     Active Substance: DULOXETINE HYDROCHLORIDE
     Dosage: 30 MG, QD
     Route: 048
     Dates: start: 20141212, end: 20141225
  9. JZOLOFT [Concomitant]
     Active Substance: SERTRALINE HYDROCHLORIDE
     Dosage: 50 MG, QD
     Route: 048
     Dates: start: 20141211, end: 20150107
  10. BENOZIL [Concomitant]
     Dosage: 20 MG, QD
     Route: 048
     Dates: start: 20141225, end: 20150107
  11. BELSOMRA [Suspect]
     Active Substance: SUVOREXANT
     Indication: INSOMNIA
     Dosage: 20 MG, QD
     Route: 048
     Dates: start: 20141211, end: 20150108
  12. ABILIFY [Concomitant]
     Active Substance: ARIPIPRAZOLE
     Dosage: 3 MG, BID
     Route: 048
     Dates: start: 20141211, end: 20141225
  13. LEXAPRO [Concomitant]
     Active Substance: ESCITALOPRAM OXALATE
     Dosage: 20 MG, QD
     Route: 048
  14. LASIX [Concomitant]
     Active Substance: FUROSEMIDE
     Dosage: 40 MG, BID
     Route: 048
     Dates: start: 20141212
  15. TRAZODONE HYDROCHLORIDE. [Concomitant]
     Active Substance: TRAZODONE HYDROCHLORIDE
     Dosage: 200 MG, QD
     Route: 048
     Dates: start: 20141211, end: 20150107
  16. FLUNITRAZEPAM [Concomitant]
     Active Substance: FLUNITRAZEPAM
     Dosage: 2 MG, QD
     Route: 048
     Dates: start: 20141211, end: 20141224
  17. METGLUCO [Concomitant]
     Active Substance: METFORMIN HYDROCHLORIDE
     Dosage: 750 MG, BID
     Route: 048
     Dates: end: 20141211
  18. PANVITAN [Concomitant]
     Dosage: 0.7 G, TID
     Route: 048
  19. CYMBALTA [Concomitant]
     Active Substance: DULOXETINE HYDROCHLORIDE
     Dosage: 40 MG, QD
     Route: 048
     Dates: start: 20141226, end: 20150108
  20. LASIX [Concomitant]
     Active Substance: FUROSEMIDE
     Dosage: 80 MG, QD
     Route: 048
     Dates: end: 20141211
  21. PYRETHIA [Concomitant]
     Active Substance: PROMETHAZINE HYDROCHLORIDE
     Dosage: 0.4 G, QD
     Route: 048
  22. GABAPEN [Concomitant]
     Active Substance: GABAPENTIN
     Dosage: 200 MG, QD
     Route: 048
     Dates: start: 20141225, end: 20150107
  23. ABILIFY [Concomitant]
     Active Substance: ARIPIPRAZOLE
     Dosage: 3 MG, BID
     Dates: start: 20141226, end: 20150108
  24. WINTERMIN [Concomitant]
     Active Substance: PROMAZINE
     Dosage: 0.25 G, QD
     Route: 048
     Dates: start: 20141225, end: 20150107
  25. FLUNITRAZEPAM [Concomitant]
     Active Substance: FLUNITRAZEPAM
     Dosage: 1MG, QD
     Route: 048
     Dates: start: 20141211, end: 20141224
  26. LOXOPROFEN [Concomitant]
     Active Substance: LOXOPROFEN
     Indication: HEADACHE
     Dosage: 180 MG, AT THE TIME OF HEADACHE
     Route: 048

REACTIONS (5)
  - Nystagmus [Unknown]
  - Dizziness [Unknown]
  - Intentional self-injury [Recovered/Resolved]
  - Headache [Unknown]
  - Suicidal ideation [Recovered/Resolved]

NARRATIVE: CASE EVENT DATE: 20141225
